FAERS Safety Report 24703324 (Version 4)
Quarter: 2025Q3

REPORT INFORMATION
  Report Type: Spontaneous
  Country: JP (occurrence: JP)
  Receive Date: 20241205
  Receipt Date: 20250809
  Transmission Date: 20251020
  Serious: Yes (Other)
  Sender: ALEXION PHARMACEUTICALS
  Company Number: JP-ASTRAZENECA-240136827_013020_P_1

PATIENT
  Age: 81 Year
  Sex: Male
  Weight: 64 kg

DRUGS (6)
  1. OSIMERTINIB [Suspect]
     Active Substance: OSIMERTINIB
     Indication: Non-small cell lung cancer
     Dosage: 80 MILLIGRAM, QD
     Dates: start: 20221025, end: 20231215
  2. Acinon [Concomitant]
     Indication: Chronic gastritis
  3. Acinon [Concomitant]
  4. GASLON [Concomitant]
     Active Substance: IRSOGLADINE MALEATE
     Indication: Chronic gastritis
  5. GASLON [Concomitant]
     Active Substance: IRSOGLADINE MALEATE
  6. MIROGABALIN BESYLATE [Concomitant]
     Active Substance: MIROGABALIN BESYLATE
     Indication: Herpes zoster

REACTIONS (3)
  - Interstitial lung disease [Recovered/Resolved]
  - Lung carcinoma cell type unspecified recurrent [Not Recovered/Not Resolved]
  - Aspergillus test positive [Unknown]

NARRATIVE: CASE EVENT DATE: 20231215
